FAERS Safety Report 11104246 (Version 1)
Quarter: 2015Q2

REPORT INFORMATION
  Report Type: Spontaneous
  Country: US (occurrence: US)
  Receive Date: 20150511
  Receipt Date: 20150511
  Transmission Date: 20150821
  Serious: No
  Sender: FDA-Public Use
  Company Number: US-BAYER-2015-179806

PATIENT
  Sex: Female

DRUGS (2)
  1. REGORAFENIB [Suspect]
     Active Substance: REGORAFENIB
     Dosage: DAILY DOSE OF 160 MG
     Route: 048
  2. REGORAFENIB [Suspect]
     Active Substance: REGORAFENIB
     Dosage: DAILY DOSE OF 120 MG FOR 1.5 YEAR
     Route: 048

REACTIONS (1)
  - Palmar-plantar erythrodysaesthesia syndrome [None]
